FAERS Safety Report 4989779-8 (Version None)
Quarter: 2006Q2

REPORT INFORMATION
  Report Type: 
  Country: None (occurrence: None)
  Receive Date: 20060503
  Receipt Date: 20060421
  Transmission Date: 20061013
  Serious: Yes (Other)
  Sender: FDA-Public Use
  Company Number: US-SP-2006-00911

PATIENT
  Age: 13 Year
  Sex: Female

DRUGS (7)
  1. DECAVAC [Suspect]
     Indication: IMMUNISATION
     Route: 065
     Dates: start: 20060111
  2. DECAVAC [Suspect]
     Route: 065
     Dates: start: 20060111
  3. TUBERSOL [Suspect]
     Indication: TUBERCULIN TEST
     Route: 065
     Dates: start: 20060111
  4. TUBERSOL [Suspect]
     Route: 065
     Dates: start: 20060111
  5. HEPATITIS A VACCINE [Suspect]
     Indication: IMMUNISATION
     Route: 065
     Dates: start: 20060111
  6. INFLUENZA VIRUS VACC USP TRIVAL A AND B, SUBVIRION-U [Concomitant]
     Indication: IMMUNISATION
     Route: 065
     Dates: start: 20051205
  7. ALLERGY SHOTS [Concomitant]

REACTIONS (4)
  - ABASIA [None]
  - ASTHENIA [None]
  - HEADACHE [None]
  - SINUSITIS [None]
